FAERS Safety Report 23956913 (Version 1)
Quarter: 2024Q2

REPORT INFORMATION
  Report Type: Spontaneous
  Country: CN (occurrence: CN)
  Receive Date: 20240610
  Receipt Date: 20240610
  Transmission Date: 20240715
  Serious: Yes (Other)
  Sender: FDA-Public Use
  Company Number: CN-002147023-NVSC2024CN120221

PATIENT
  Age: 30 Year
  Sex: Female
  Weight: 42 kg

DRUGS (1)
  1. BASILIXIMAB [Suspect]
     Active Substance: BASILIXIMAB
     Indication: Acute lymphocytic leukaemia
     Dosage: 20 MG, QD
     Route: 041
     Dates: start: 20240528, end: 20240531

REACTIONS (1)
  - Hypokalaemia [Recovered/Resolved]

NARRATIVE: CASE EVENT DATE: 20240601
